FAERS Safety Report 12377400 (Version 4)
Quarter: 2016Q3

REPORT INFORMATION
  Report Type: Spontaneous
  Country: US (occurrence: US)
  Receive Date: 20160517
  Receipt Date: 20160712
  Transmission Date: 20161109
  Serious: Yes (Hospitalization)
  Sender: FDA-Public Use
  Company Number: US-PFIZER INC-2016255984

PATIENT
  Age: 39 Year
  Sex: Male
  Weight: 67.57 kg

DRUGS (5)
  1. ACYCLOVIR /00587301/ [Concomitant]
     Active Substance: ACYCLOVIR
     Indication: ANTIVIRAL TREATMENT
     Dosage: 800 MG, 2X/DAY
     Route: 048
  2. AZITHROMYCINE [Concomitant]
     Active Substance: AZITHROMYCIN DIHYDRATE
     Dosage: 800 MG, 2X/DAY
     Route: 048
  3. MONTELUKAST [Concomitant]
     Active Substance: MONTELUKAST SODIUM
     Dosage: UNK
  4. VFEND [Suspect]
     Active Substance: VORICONAZOLE
     Indication: ASPERGILLOMA
     Dosage: 300 MG, 2X/DAY (A TABLET AND A HALF THAT WAS WHAT HE WAS PRESCRIBED)
     Route: 048
     Dates: start: 201510
  5. SINGULAIR [Concomitant]
     Active Substance: MONTELUKAST SODIUM
     Dosage: 10 MG, 1X/DAY (ONE PILL AT NIGHT)
     Route: 048

REACTIONS (3)
  - Pneumonia bacterial [Unknown]
  - Condition aggravated [Unknown]
  - Aspergilloma [Unknown]
